FAERS Safety Report 4332403-8 (Version None)
Quarter: 2004Q2

REPORT INFORMATION
  Report Type: 
  Country: None (occurrence: None)
  Receive Date: 20040401
  Receipt Date: 20040319
  Transmission Date: 20050107
  Serious: Yes (Other)
  Sender: FDA-Public Use
  Company Number: 2004019176

PATIENT
  Age: 78 Year
  Sex: Female

DRUGS (8)
  1. ZYRTEC [Suspect]
     Indication: HYPERSENSITIVITY
     Dosage: 10 MG (DAILY), ORAL
     Route: 048
     Dates: start: 20040130, end: 20040205
  2. NIFEDIPINE [Concomitant]
  3. NICORANDIL (NICORANDIL) [Concomitant]
  4. DISOPYRAMIDE [Concomitant]
  5. PRAVASTATIN SODIUM [Concomitant]
  6. TEPRENONE (TEPRENONE) [Concomitant]
  7. ROPIVERINE HYDROCHLORIDE (PROPIVERINE HYDROCHLORIDE) [Concomitant]
  8. ACETYLSALICYLIC ACID SRT [Concomitant]

REACTIONS (6)
  - BLOOD PRESSURE INCREASED [None]
  - HAEMATURIA [None]
  - OEDEMA PERIPHERAL [None]
  - PROTEIN URINE PRESENT [None]
  - RENAL DISORDER [None]
  - WHITE BLOOD CELLS URINE POSITIVE [None]
